FAERS Safety Report 5218169-8 (Version None)
Quarter: 2007Q1

REPORT INFORMATION
  Report Type: 
  Country: None (occurrence: None)
  Receive Date: 20061130
  Receipt Date: 20060712
  Transmission Date: 20070707
  Serious: Yes (Hospitalization)
  Sender: FDA-Public Use
  Company Number: US200603000229

PATIENT
  Age: 48 Year
  Sex: Male
  Weight: 88.4 kg

DRUGS (4)
  1. ZYPREXA [Suspect]
     Indication: SCHIZOPHRENIA, PARANOID TYPE
     Dosage: 10 MG
     Dates: start: 20040101
  2. ZYPREXA [Suspect]
     Indication: SCHIZOPHRENIA, PARANOID TYPE
     Dosage: 10 MG
     Dates: start: 20040601
  3. RISPERIDONE [Concomitant]
  4. HALDOL (HALDOPERIDOL) [Concomitant]

REACTIONS (5)
  - DIABETES MELLITUS [None]
  - HYPERLIPIDAEMIA [None]
  - HYPERTENSION [None]
  - VISION BLURRED [None]
  - WEIGHT INCREASED [None]
